FAERS Safety Report 20259900 (Version 1)
Quarter: 2021Q4

REPORT INFORMATION
  Report Type: Spontaneous
  Country: PT (occurrence: PT)
  Receive Date: 20211230
  Receipt Date: 20211230
  Transmission Date: 20220303
  Serious: Yes (Other)
  Sender: FDA-Public Use
  Company Number: PT-SAMSUNG BIOEPIS-SB-2021-30338

PATIENT
  Age: 21 Year
  Sex: Male

DRUGS (5)
  1. INFLIXIMAB [Suspect]
     Active Substance: INFLIXIMAB
     Indication: Cutaneous calcification
     Dosage: UNKNOWN
     Route: 065
  2. ETANERCEPT [Suspect]
     Active Substance: ETANERCEPT
     Indication: Cutaneous calcification
     Dosage: UNKNOWN
     Route: 065
  3. SODIUM THIOSULFATE [Concomitant]
     Active Substance: SODIUM THIOSULFATE
     Indication: Cutaneous calcification
     Dosage: UNKNOWN
     Route: 065
  4. METHOTREXATE [Concomitant]
     Active Substance: METHOTREXATE
     Indication: Cutaneous calcification
     Dosage: UNKNOWN
     Route: 065
  5. CYCLOSPORINE [Concomitant]
     Active Substance: CYCLOSPORINE
     Indication: Cutaneous calcification
     Dosage: UNKNOWN
     Route: 065

REACTIONS (7)
  - Lipodystrophy acquired [Unknown]
  - Hypersensitivity [Unknown]
  - Skin infection [Unknown]
  - Arthropathy [Unknown]
  - Osteoarthritis [Unknown]
  - Drug ineffective for unapproved indication [Unknown]
  - Off label use [Unknown]
